FAERS Safety Report 6075003-4 (Version None)
Quarter: 2009Q1

REPORT INFORMATION
  Report Type: 
  Country: None (occurrence: None)
  Receive Date: 20090210
  Receipt Date: 20090126
  Transmission Date: 20090719
  Serious: Yes (Hospitalization)
  Sender: FDA-Public Use
  Company Number: 2009S1001554

PATIENT
  Age: 62 Year
  Sex: Female

DRUGS (6)
  1. FENTANYL TRANSDERMAL SYSTEM [Suspect]
     Indication: PANCREATIC CARCINOMA
     Dosage: 75 UG; EVERY HOUR; TRANSDERMAL
     Route: 062
     Dates: start: 20090101
  2. BENICAR [Concomitant]
  3. ZOFRAN [Concomitant]
  4. DILAUDID [Concomitant]
  5. ZOLOFT [Concomitant]
  6. PROTONIX/01263201/ [Concomitant]

REACTIONS (8)
  - CONFUSIONAL STATE [None]
  - DRUG EFFECT INCREASED [None]
  - DYSARTHRIA [None]
  - GASTROENTERITIS [None]
  - PNEUMONIA [None]
  - SOMNOLENCE [None]
  - UPPER LIMB FRACTURE [None]
  - URINARY TRACT INFECTION [None]
